FAERS Safety Report 8160251-X (Version None)
Quarter: 2012Q1

REPORT INFORMATION
  Report Type: 
  Country: None (occurrence: None)
  Receive Date: 20120223
  Receipt Date: 20120217
  Transmission Date: 20120608
  Serious: Yes (Death, Hospitalization)
  Sender: FDA-Public Use
  Company Number: DE-ELI_LILLY_AND_COMPANY-DE201202005478

PATIENT
  Age: 66 Year
  Sex: Male

DRUGS (3)
  1. GEMCITABINE HYDROCHLORIDE [Suspect]
     Dosage: 750 MG/M2, UNKNOWN
     Route: 042
     Dates: start: 20101208
  2. GEMCITABINE HYDROCHLORIDE [Suspect]
     Indication: PANCREATIC CARCINOMA METASTATIC
     Dosage: 1000 MG/M2, CYCLIC
     Route: 042
     Dates: start: 20101123
  3. PLACEBO [Suspect]
     Indication: PANCREATIC CARCINOMA METASTATIC
     Dosage: 2 MG, QD
     Route: 048
     Dates: start: 20101123

REACTIONS (2)
  - PNEUMONIA [None]
  - TACHYCARDIA [None]
